FAERS Safety Report 4264755-1 (Version None)
Quarter: 2004Q1

REPORT INFORMATION
  Report Type: 
  Country: None (occurrence: None)
  Receive Date: 20040102
  Receipt Date: 20031215
  Transmission Date: 20041129
  Serious: Yes (Other)
  Sender: FDA-Public Use
  Company Number: JP_030901846

PATIENT
  Age: 68 Year
  Sex: Male

DRUGS (4)
  1. ONCOVIN [Suspect]
     Indication: MALIGNANT FIBROUS HISTIOCYTOMA
     Dosage: 1 MG OTHER
     Route: 050
     Dates: start: 20020812
  2. CYCLOPHOSPHAMIDE [Concomitant]
  3. DOXORUBICIN HCL [Concomitant]
  4. DARCABAZINE [Concomitant]

REACTIONS (5)
  - MALIGNANT FIBROUS HISTIOCYTOMA [None]
  - MALIGNANT NEOPLASM PROGRESSION [None]
  - NAUSEA [None]
  - PLEURAL EFFUSION [None]
  - VOMITING [None]
